FAERS Safety Report 5965579-7 (Version None)
Quarter: 2008Q4

REPORT INFORMATION
  Report Type: 
  Country: None (occurrence: None)
  Receive Date: 20081125
  Receipt Date: 20081117
  Transmission Date: 20090506
  Serious: Yes (Other)
  Sender: FDA-Public Use
  Company Number: US-ASTRAZENECA-2008UW25761

PATIENT
  Age: 65 Year
  Sex: Female

DRUGS (6)
  1. CRESTOR [Suspect]
     Indication: BLOOD CHOLESTEROL INCREASED
     Route: 048
  2. ALTACE [Concomitant]
  3. ASAFEX [Concomitant]
  4. PROPRANOLOL [Concomitant]
  5. METHOTREXATE [Concomitant]
  6. LIALDA [Concomitant]

REACTIONS (1)
  - PSEUDOPORPHYRIA [None]
